FAERS Safety Report 17103069 (Version 1)
Quarter: 2019Q4

REPORT INFORMATION
  Report Type: Spontaneous
  Country: CA (occurrence: CA)
  Receive Date: 20191203
  Receipt Date: 20191203
  Transmission Date: 20200122
  Serious: Yes (Death)
  Sender: FDA-Public Use
  Company Number: CA-ROCHE-2489985

PATIENT

DRUGS (1)
  1. TECENTRIQ [Suspect]
     Active Substance: ATEZOLIZUMAB
     Indication: PRODUCT USED FOR UNKNOWN INDICATION
     Dosage: ON 29/AUG/2019, NEXT DOSE OF ATEZOLIZUMAB WAS RECEIVED AND 19/SEP/2019 MOST RECENT DOSE OF ATEZOLIZU
     Route: 065
     Dates: start: 20190808

REACTIONS (1)
  - Death [Fatal]

NARRATIVE: CASE EVENT DATE: 20191010
